FAERS Safety Report 5365681-7 (Version None)
Quarter: 2007Q2

REPORT INFORMATION
  Report Type: 
  Country: None (occurrence: None)
  Receive Date: 20070621
  Receipt Date: 20070618
  Transmission Date: 20071010
  Serious: Yes (Life-Threatening, Hospitalization, Other)
  Sender: FDA-Public Use
  Company Number: US-ELI_LILLY_AND_COMPANY-US200701003938

PATIENT
  Age: 68 Year
  Sex: Female
  Weight: 68.48 kg

DRUGS (9)
  1. BYETTA [Suspect]
     Indication: DIABETES MELLITUS NON-INSULIN-DEPENDENT
     Dosage: 10 UG, 2/D
     Route: 058
     Dates: start: 20061101
  2. BYETTA [Suspect]
     Dosage: 5 UG, 2/D
     Route: 058
     Dates: start: 20060901, end: 20061101
  3. METFORMIN HCL [Concomitant]
     Indication: DIABETES MELLITUS
     Dosage: 500 MG, 2/D
     Route: 048
     Dates: start: 20050101
  4. GLYBURIDE [Concomitant]
     Indication: DIABETES MELLITUS
     Dosage: 1.25 MG, DAILY (1/D)
     Route: 048
     Dates: start: 20070101
  5. AVANDIA [Concomitant]
     Indication: DIABETES MELLITUS
     Dosage: 8 MG, DAILY (1/D)
     Route: 048
     Dates: start: 20060101
  6. NITROGLYCERIN [Concomitant]
     Indication: CHEST PAIN
     Dosage: UNK, AS NEEDED
     Dates: start: 20040101
  7. PROCRIT [Concomitant]
     Indication: ANAEMIA
     Dosage: UNK, UNKNOWN
     Dates: start: 20060101
  8. ASPIRIN [Concomitant]
     Dosage: UNK, UNKNOWN
  9. BETA BLOCKING AGENTS [Concomitant]
     Dosage: UNK, UNKNOWN

REACTIONS (6)
  - BLOOD GLUCOSE DECREASED [None]
  - CARDIAC ARREST [None]
  - CORONARY ARTERY OCCLUSION [None]
  - FEELING ABNORMAL [None]
  - MYOCARDIAL INFARCTION [None]
  - WEIGHT DECREASED [None]
